FAERS Safety Report 19095055 (Version 1)
Quarter: 2021Q2

REPORT INFORMATION
  Report Type: Spontaneous
  Country: CA (occurrence: CA)
  Receive Date: 20210406
  Receipt Date: 20210406
  Transmission Date: 20210717
  Serious: Yes (Hospitalization, Other)
  Sender: FDA-Public Use
  Company Number: CA-LUPIN PHARMACEUTICALS INC.-2021-04156

PATIENT
  Age: 36 Year
  Sex: Female

DRUGS (2)
  1. TESTOSTERONE. [Suspect]
     Active Substance: TESTOSTERONE
     Indication: TRANSGENDER HORMONAL THERAPY
     Dosage: UNK, A COURSE OF INJECTABLE TESTOSTERONE UNTIL A YEAR BEFORE PRESENTATION
     Route: 065
  2. TESTOSTERONE. [Suspect]
     Active Substance: TESTOSTERONE
     Dosage: UNK, 1% TESTOSTERONE GEL
     Route: 062

REACTIONS (4)
  - Ovarian necrosis [Unknown]
  - Ovarian endometrioid carcinoma [Unknown]
  - Ovarian cancer stage II [Unknown]
  - Adnexal torsion [Unknown]
